FAERS Safety Report 9706778 (Version 1)
Quarter: 2013Q4

REPORT INFORMATION
  Report Type: Spontaneous
  Country: PL (occurrence: PL)
  Receive Date: 20131125
  Receipt Date: 20131125
  Transmission Date: 20140711
  Serious: Yes (Death)
  Sender: FDA-Public Use
  Company Number: PHHY2013PL133556

PATIENT
  Age: 49 Year
  Sex: Male

DRUGS (2)
  1. SANDOSTATIN LAR [Suspect]
     Indication: CARCINOID SYNDROME
     Dosage: 20 MG
  2. SANDOSTATIN LAR [Suspect]
     Dosage: 20 MG
     Dates: start: 201007

REACTIONS (1)
  - Death [Fatal]
